FAERS Safety Report 24375481 (Version 1)
Quarter: 2024Q3

REPORT INFORMATION
  Report Type: Spontaneous
  Country: US (occurrence: US)
  Receive Date: 20240928
  Receipt Date: 20240928
  Transmission Date: 20241016
  Serious: No
  Sender: MERCK
  Company Number: US-009507513-2409USA009388

PATIENT
  Age: 26 Year
  Sex: Female

DRUGS (2)
  1. CUBICIN [Suspect]
     Active Substance: DAPTOMYCIN
     Indication: Staphylococcal bacteraemia
  2. CUBICIN [Suspect]
     Active Substance: DAPTOMYCIN
     Indication: Pneumonia

REACTIONS (1)
  - Product use in unapproved indication [Unknown]
